FAERS Safety Report 21780152 (Version 1)
Quarter: 2022Q4

REPORT INFORMATION
  Report Type: Report from Study
  Country: US (occurrence: US)
  Receive Date: 20221226
  Receipt Date: 20221226
  Transmission Date: 20230113
  Serious: No
  Sender: FDA-Public Use
  Company Number: US-002147023-NVSC2022US298473

PATIENT
  Sex: Female

DRUGS (1)
  1. ZARXIO [Suspect]
     Active Substance: FILGRASTIM-SNDZ
     Indication: Product used for unknown indication
     Dosage: 0.5 ML, OTHER (INJECT 300MCG UNDER THE SKIN DAILY FOR 2 DAYS, 24 HOURS AFTER CHEMO, WEEKLY FOR 21 DA
     Route: 058

REACTIONS (1)
  - White blood cell count decreased [Unknown]
